FAERS Safety Report 9783908 (Version 2)
Quarter: 2014Q1

REPORT INFORMATION
  Report Type: Spontaneous
  Country: US (occurrence: US)
  Receive Date: 20131226
  Receipt Date: 20140326
  Transmission Date: 20141002
  Serious: No
  Sender: FDA-Public Use
  Company Number: US-PFIZER INC-2013364813

PATIENT
  Age: 51 Year
  Sex: Male
  Weight: 92.52 kg

DRUGS (2)
  1. SUTENT [Suspect]
     Indication: RENAL CANCER METASTATIC
     Dosage: 37.5 MG, 1X/DAY
     Route: 048
     Dates: start: 20131208
  2. OXYCODONE [Concomitant]
     Dosage: UNK

REACTIONS (2)
  - Flank pain [Unknown]
  - Nasopharyngitis [Unknown]
